FAERS Safety Report 5328474-2 (Version None)
Quarter: 2007Q2

REPORT INFORMATION
  Report Type: 
  Country: None (occurrence: None)
  Receive Date: 20070518
  Receipt Date: 20070509
  Transmission Date: 20071010
  Serious: Yes (Hospitalization)
  Sender: FDA-Public Use
  Company Number: JP-ROCHE-489508

PATIENT
  Age: 18 Year
  Sex: Female

DRUGS (5)
  1. TAMIFLU [Suspect]
     Route: 048
     Dates: start: 20070319, end: 20070319
  2. TAMIFLU [Suspect]
     Route: 048
     Dates: start: 20070320, end: 20070322
  3. TAMIFLU [Suspect]
     Route: 048
     Dates: start: 20070323, end: 20070323
  4. AZULENE SULFONATE SODIUM [Concomitant]
     Dosage: ROUTE: GARGLE.FORM: OROPHARINGEAL. DRUG REPORTED AS AZUGAGURU (AZULENE SULFONATE SODIUM).
     Route: 050
     Dates: start: 20070319
  5. MA-OU-TOU [Concomitant]
     Dosage: DRUG REPORTED AS MAO-TO.
     Route: 048
     Dates: start: 20070319

REACTIONS (1)
  - SUICIDE ATTEMPT [None]
